FAERS Safety Report 14627517 (Version 6)
Quarter: 2018Q4

REPORT INFORMATION
  Report Type: Spontaneous
  Country: PR (occurrence: PR)
  Receive Date: 20180312
  Receipt Date: 20181213
  Transmission Date: 20190204
  Serious: Yes (Other)
  Sender: FDA-Public Use
  Company Number: PR-PFIZER INC-2018096331

PATIENT
  Age: 79 Year
  Sex: Female
  Weight: 54.4 kg

DRUGS (4)
  1. IBRANCE [Suspect]
     Active Substance: PALBOCICLIB
     Dosage: 75 MG, CYCLIC (1 CAPSULE DAILY 1-21 DAYS)
     Route: 048
     Dates: start: 20170527
  2. IBRANCE [Suspect]
     Active Substance: PALBOCICLIB
     Indication: BREAST CANCER
     Dosage: 75 MG, DAILY
     Route: 048
     Dates: start: 20170522
  3. IBRANCE [Suspect]
     Active Substance: PALBOCICLIB
     Dosage: 75 MG, DAILY
     Route: 048
     Dates: start: 20170527
  4. IBRANCE [Suspect]
     Active Substance: PALBOCICLIB
     Dosage: 75 MG, DAILY
     Route: 048
     Dates: start: 20170620

REACTIONS (6)
  - Insomnia [Not Recovered/Not Resolved]
  - Blindness [Unknown]
  - White blood cell count decreased [Unknown]
  - Pruritus [Unknown]
  - Retinal disorder [Unknown]
  - Cataract [Unknown]

NARRATIVE: CASE EVENT DATE: 20180305
